FAERS Safety Report 20851780 (Version 2)
Quarter: 2022Q2

REPORT INFORMATION
  Report Type: Spontaneous
  Country: US (occurrence: US)
  Receive Date: 20220520
  Receipt Date: 20220609
  Transmission Date: 20220720
  Serious: Yes (Other)
  Sender: FDA-Public Use
  Company Number: US-NOVOPROD-917858

PATIENT
  Age: 70 Year
  Sex: Female

DRUGS (2)
  1. NOVOLOG [Suspect]
     Active Substance: INSULIN ASPART
     Indication: Product used for unknown indication
     Dosage: UNK (SLIDING SCALE)
     Route: 058
  2. TRESIBA [Suspect]
     Active Substance: INSULIN DEGLUDEC
     Indication: Product used for unknown indication
     Dosage: 18 IU
     Route: 058

REACTIONS (3)
  - Cataract [Not Recovered/Not Resolved]
  - Cataract [Not Recovered/Not Resolved]
  - Arthralgia [Unknown]
